FAERS Safety Report 9761944 (Version 2)
Quarter: 2014Q1

REPORT INFORMATION
  Report Type: Spontaneous
  Country: US (occurrence: US)
  Receive Date: 20131216
  Receipt Date: 20140124
  Transmission Date: 20141002
  Serious: No
  Sender: FDA-Public Use
  Company Number: US-BIOGENIDEC-2013BI106275

PATIENT
  Age: 59 Year
  Sex: Female

DRUGS (3)
  1. TECFIDERA [Suspect]
     Indication: MULTIPLE SCLEROSIS
     Route: 048
     Dates: start: 201310
  2. KLONOPIN [Concomitant]
  3. ZOLOFT [Concomitant]

REACTIONS (3)
  - Intentional drug misuse [Unknown]
  - Fear [Unknown]
  - Flushing [Recovered/Resolved]
